FAERS Safety Report 8323302-5 (Version None)
Quarter: 2012Q2

REPORT INFORMATION
  Report Type: 
  Country: None (occurrence: None)
  Receive Date: 20120430
  Receipt Date: 20120425
  Transmission Date: 20120825
  Serious: No
  Sender: FDA-Public Use
  Company Number: US-PFIZER INC-2012102945

PATIENT
  Sex: Female
  Weight: 93.424 kg

DRUGS (13)
  1. LYRICA [Concomitant]
     Dosage: UNK
  2. FISH OIL [Concomitant]
     Dosage: UNK
  3. PRAVASTATIN [Concomitant]
     Dosage: UNK
  4. LEXAPRO [Concomitant]
     Dosage: UNK
  5. MAXIDEX [Concomitant]
     Dosage: UNK
  6. CELEBREX [Suspect]
     Indication: SPONDYLITIS
  7. CELEBREX [Suspect]
     Indication: PAIN
     Dosage: 200 MG, 1X/DAY
     Route: 048
     Dates: start: 20111201
  8. CELEBREX [Suspect]
     Indication: ARTHRITIS
  9. VITAMIN C [Concomitant]
     Dosage: UNK
  10. CALCIUM [Concomitant]
     Dosage: UNK
  11. VITAMIN B-12 [Concomitant]
     Dosage: UNK
  12. VITAMIN E [Concomitant]
     Dosage: UNK
  13. CLONIDINE [Concomitant]
     Dosage: UNK

REACTIONS (1)
  - DIZZINESS [None]
